FAERS Safety Report 14520559 (Version 1)
Quarter: 2018Q1

REPORT INFORMATION
  Report Type: Other
  Country: AU (occurrence: AU)
  Receive Date: 20180212
  Receipt Date: 20180212
  Transmission Date: 20180509
  Serious: Yes (Death, Hospitalization, Other)
  Sender: FDA-Public Use
  Company Number: AU-ACTELION-A-CH2018-167316

PATIENT
  Age: 63 Year
  Sex: Female

DRUGS (3)
  1. SILDENAFIL. [Concomitant]
     Active Substance: SILDENAFIL
     Dosage: 25 MG, TID
     Route: 048
  2. BOSENTAN. [Suspect]
     Active Substance: BOSENTAN
     Indication: PULMONARY CAPILLARY HAEMANGIOMATOSIS
     Dosage: 125 MG, BID
     Route: 048
  3. EPOPROSTENOL SODIUM. [Suspect]
     Active Substance: EPOPROSTENOL SODIUM
     Indication: PULMONARY CAPILLARY HAEMANGIOMATOSIS
     Dosage: 4 NG/KG, PER MIN
     Route: 042

REACTIONS (6)
  - Fluid overload [Unknown]
  - Right ventricular failure [Fatal]
  - Dyspnoea [Recovering/Resolving]
  - Acute pulmonary oedema [Unknown]
  - Oesophageal motility disorder [Unknown]
  - Nutritional condition abnormal [Unknown]
